FAERS Safety Report 7091296-9 (Version None)
Quarter: 2010Q4

REPORT INFORMATION
  Report Type: 
  Country: None (occurrence: None)
  Receive Date: 20101109
  Receipt Date: 20101029
  Transmission Date: 20110411
  Serious: Yes (Hospitalization)
  Sender: FDA-Public Use
  Company Number: PHHO2010GB05799

PATIENT
  Sex: Male
  Weight: 73 kg

DRUGS (3)
  1. FTY 720 FTY+CAP+MSC [Suspect]
     Indication: MULTIPLE SCLEROSIS
     Dosage: DOSE BLINDED
     Route: 048
     Dates: start: 20090527
  2. PARACETAMOL [Concomitant]
     Indication: HEADACHE
     Dosage: UNK
     Dates: start: 20050101
  3. DANTROLENE SODIUM [Concomitant]
     Indication: MUSCLE SPASMS
     Dosage: UNK
     Dates: start: 20100108

REACTIONS (2)
  - BACK PAIN [None]
  - PYELONEPHRITIS [None]
